FAERS Safety Report 23149576 (Version 1)
Quarter: 2023Q4

REPORT INFORMATION
  Report Type: Spontaneous
  Country: US (occurrence: None)
  Receive Date: 20231104
  Receipt Date: 20231104
  Transmission Date: 20240109
  Serious: Yes (unspecified)
  Sender: FDA-Public Use
  Company Number: None

PATIENT
  Age: 36 Year
  Sex: Female
  Weight: 135 kg

DRUGS (3)
  1. EQUATE EYE ALLERGY RELIEF DROPS [Suspect]
     Active Substance: NAPHAZOLINE HYDROCHLORIDE\PHENIRAMINE MALEATE
     Indication: Multiple allergies
  2. Bp med [Concomitant]
  3. thyroid med [Concomitant]

REACTIONS (3)
  - Nonspecific reaction [None]
  - Swelling of eyelid [None]
  - Eye disorder [None]

NARRATIVE: CASE EVENT DATE: 20200520
